FAERS Safety Report 20187588 (Version 1)
Quarter: 2021Q4

REPORT INFORMATION
  Report Type: Spontaneous
  Country: None (occurrence: US)
  Receive Date: 20211215
  Receipt Date: 20211215
  Transmission Date: 20220303
  Serious: No
  Sender: FDA-Public Use
  Company Number: US-ITALFARMACO SPA-2123037

PATIENT
  Age: 78 Year
  Sex: Male

DRUGS (8)
  1. TIGLUTIK [Suspect]
     Active Substance: RILUZOLE
     Indication: Amyotrophic lateral sclerosis
     Dates: start: 20211115, end: 20211116
  2. ASPIRIN [Concomitant]
     Active Substance: ASPIRIN
  3. COREG [Concomitant]
     Active Substance: CARVEDILOL
  4. ESCITALOPRAM [Concomitant]
     Active Substance: ESCITALOPRAM OXALATE
  5. FUROSEMIDE [Concomitant]
     Active Substance: FUROSEMIDE
  6. GABAPENTIN [Concomitant]
     Active Substance: GABAPENTIN
  7. LISINOPRIL [Concomitant]
     Active Substance: LISINOPRIL
  8. PLAVIX [Concomitant]
     Active Substance: CLOPIDOGREL BISULFATE

REACTIONS (3)
  - Nausea [Recovered/Resolved]
  - Hyperhidrosis [Recovered/Resolved]
  - Chest pain [Recovered/Resolved]

NARRATIVE: CASE EVENT DATE: 20211115
